FAERS Safety Report 7419795-8 (Version None)
Quarter: 2011Q2

REPORT INFORMATION
  Report Type: 
  Country: None (occurrence: None)
  Receive Date: 20110418
  Receipt Date: 20110404
  Transmission Date: 20111010
  Serious: Yes (Other)
  Sender: FDA-Public Use
  Company Number: US-JNJFOC-20110104806

PATIENT
  Sex: Female
  Weight: 79 kg

DRUGS (3)
  1. ROWASA [Concomitant]
     Indication: COLITIS ULCERATIVE
     Route: 054
  2. REMICADE [Suspect]
     Indication: COLITIS ULCERATIVE
     Route: 042
  3. MESALAMINE [Concomitant]
     Indication: COLITIS ULCERATIVE
     Route: 065

REACTIONS (1)
  - TUBERCULIN TEST POSITIVE [None]
